FAERS Safety Report 15656123 (Version 1)
Quarter: 2018Q4

REPORT INFORMATION
  Report Type: Report from Study
  Country: US (occurrence: US)
  Receive Date: 20181126
  Receipt Date: 20181126
  Transmission Date: 20190205
  Serious: Yes (Death)
  Sender: FDA-Public Use
  Company Number: US-PFIZER INC-2018438315

PATIENT
  Age: 58 Year
  Sex: Female

DRUGS (1)
  1. IBRANCE [Suspect]
     Active Substance: PALBOCICLIB
     Indication: BREAST CANCER
     Dosage: 125 MG, CYCLIC (125 DAILY IBRANCE X 21 DAYS, OFF X 7 DAYS)
     Route: 048
     Dates: start: 20181012, end: 20181114

REACTIONS (6)
  - Death [Fatal]
  - Nausea [Unknown]
  - Stomatitis [Unknown]
  - Dyspnoea [Unknown]
  - Neoplasm progression [Unknown]
  - Fatigue [Unknown]

NARRATIVE: CASE EVENT DATE: 2018
